FAERS Safety Report 21131942 (Version 1)
Quarter: 2022Q3

REPORT INFORMATION
  Report Type: Spontaneous
  Country: US (occurrence: None)
  Receive Date: 20220726
  Receipt Date: 20220726
  Transmission Date: 20221027
  Serious: Yes (Disabling)
  Sender: FDA-Public Use
  Company Number: None

PATIENT
  Age: 49 Year
  Sex: Female
  Weight: 72 kg

DRUGS (15)
  1. TOUJEO [Suspect]
     Active Substance: INSULIN GLARGINE
     Indication: Diabetes mellitus
     Dosage: OTHER QUANTITY : 1 PEN;?FREQUENCY : AT BEDTIME;?
     Route: 058
     Dates: start: 20220701, end: 20220725
  2. TOUJEO MAX [Suspect]
     Active Substance: INSULIN GLARGINE
  3. METFORMIN [Concomitant]
     Active Substance: METFORMIN HYDROCHLORIDE
  4. fentinyal [Concomitant]
  5. OXYCODONE [Concomitant]
     Active Substance: OXYCODONE
  6. BACLOFEN [Concomitant]
     Active Substance: BACLOFEN
  7. SEROQUEL [Concomitant]
     Active Substance: QUETIAPINE FUMARATE
  8. valcyclovier [Concomitant]
  9. COLLAGEN [Concomitant]
     Active Substance: COLLAGEN
  10. LYSINE [Concomitant]
     Active Substance: LYSINE
  11. c8mct oil [Concomitant]
  12. keto protein powder [Concomitant]
  13. VITAMIN D NOS [Concomitant]
     Active Substance: VITAMIN D NOS
  14. VITAMIN B [Concomitant]
     Active Substance: VITAMIN B
  15. VITAMIN E [Concomitant]
     Active Substance: .ALPHA.-TOCOPHEROL

REACTIONS (7)
  - Product dispensing error [None]
  - Generalised oedema [None]
  - Mobility decreased [None]
  - Thrombosis [None]
  - Impaired work ability [None]
  - Product dispensing error [None]
  - Incorrect dose administered [None]

NARRATIVE: CASE EVENT DATE: 20220701
